FAERS Safety Report 19195304 (Version 1)
Quarter: 2021Q2

REPORT INFORMATION
  Report Type: Spontaneous
  Country: US (occurrence: US)
  Receive Date: 20210429
  Receipt Date: 20210429
  Transmission Date: 20210717
  Serious: Yes (Other)
  Sender: FDA-Public Use
  Company Number: None

PATIENT
  Age: 25 Year
  Sex: Female

DRUGS (1)
  1. FENTANYL 2 MCG/ML + BUPIVACAINE 0.125% IN 250 ML 0.9% SODIUM CHLORIDE [Suspect]
     Active Substance: BUPIVACAINE\FENTANYL

REACTIONS (1)
  - Therapeutic product effect incomplete [None]

NARRATIVE: CASE EVENT DATE: 20210411
